FAERS Safety Report 11399706 (Version 1)
Quarter: 2015Q3

REPORT INFORMATION
  Report Type: Spontaneous
  Country: US (occurrence: None)
  Receive Date: 20150805
  Receipt Date: 20150805
  Transmission Date: 20151125
  Serious: Yes (Hospitalization)
  Sender: FDA-Public Use
  Company Number: GTI002632

PATIENT
  Age: 70 Year
  Sex: Male
  Weight: 91 kg

DRUGS (25)
  1. GAMUNEX-C [Suspect]
     Active Substance: HUMAN IMMUNOGLOBULIN G
     Indication: IMMUNODEFICIENCY
     Dosage: 2 GM
     Route: 042
     Dates: start: 20141001, end: 20141001
  2. TRIGLIDE [Concomitant]
     Active Substance: FENOFIBRATE
  3. NORVASC [Concomitant]
     Active Substance: AMLODIPINE BESYLATE
  4. HYDROCODONE [Concomitant]
     Active Substance: HYDROCODONE
  5. ALBUTEROL. [Concomitant]
     Active Substance: ALBUTEROL
  6. LANTUS [Concomitant]
     Active Substance: INSULIN GLARGINE
  7. MAG-OX [Concomitant]
     Active Substance: MAGNESIUM OXIDE
  8. ASPIRIN. [Concomitant]
     Active Substance: ASPIRIN
  9. MUCINEX [Concomitant]
     Active Substance: GUAIFENESIN
  10. FLOMAX [Concomitant]
     Active Substance: TAMSULOSIN HYDROCHLORIDE
  11. VITAMIN D [Concomitant]
     Active Substance: CHOLECALCIFEROL
  12. FERROUS SULFATE [Concomitant]
     Active Substance: FERROUS SULFATE\FERROUS SULFATE, DRIED
  13. HOMATROPINE [Concomitant]
     Active Substance: HOMATROPINE\HOMATROPINE HYDROBROMIDE
  14. BYETTA [Concomitant]
     Active Substance: EXENATIDE
  15. HUMALOG [Concomitant]
     Active Substance: INSULIN LISPRO
  16. NEURONTIN [Concomitant]
     Active Substance: GABAPENTIN
  17. LIPITOR [Concomitant]
     Active Substance: ATORVASTATIN CALCIUM
  18. IPRATROPIUM [Concomitant]
     Active Substance: IPRATROPIUM
  19. BENADRYL [Concomitant]
     Active Substance: DIPHENHYDRAMINE HYDROCHLORIDE
  20. LOPRESSOR [Concomitant]
     Active Substance: METOPROLOL TARTRATE
  21. VITAMIN B12 [Concomitant]
     Active Substance: CYANOCOBALAMIN
  22. PRILOSEC [Concomitant]
     Active Substance: OMEPRAZOLE MAGNESIUM
  23. CIPRO [Concomitant]
     Active Substance: CIPROFLOXACIN HYDROCHLORIDE
  24. OMEGA-3 FATTY ACIDS [Concomitant]
     Active Substance: OMEGA-3 FATTY ACIDS
  25. FLUTICASONE W/SALMETEROL [Concomitant]
     Active Substance: FLUTICASONE PROPIONATE\SALMETEROL XINAFOATE

REACTIONS (8)
  - Swollen tongue [None]
  - Cough [None]
  - Tongue discolouration [None]
  - Throat tightness [None]
  - Urticaria [None]
  - Chest discomfort [None]
  - Pruritus [None]
  - Flushing [None]

NARRATIVE: CASE EVENT DATE: 20141001
